FAERS Safety Report 12606623 (Version 1)
Quarter: 2016Q3

REPORT INFORMATION
  Report Type: Spontaneous
  Country: US (occurrence: None)
  Receive Date: 20160728
  Receipt Date: 20160728
  Transmission Date: 20161109
  Serious: Yes (Disabling)
  Sender: FDA-Public Use
  Company Number: None

PATIENT
  Sex: Female

DRUGS (20)
  1. BACLOFEN. [Concomitant]
     Active Substance: BACLOFEN
  2. LORAZEPAM. [Concomitant]
     Active Substance: LORAZEPAM
  3. BUPROPION. [Concomitant]
     Active Substance: BUPROPION
  4. COLACE [Concomitant]
     Active Substance: DOCUSATE SODIUM
  5. PREDNISONE. [Concomitant]
     Active Substance: PREDNISONE
  6. XANAX [Concomitant]
     Active Substance: ALPRAZOLAM
  7. ETODOLAC. [Concomitant]
     Active Substance: ETODOLAC
  8. MORPHINE, 60 MG QUA [Suspect]
     Active Substance: MORPHINE
     Indication: PAIN
     Dosage: EVERY 12 HOURS
     Dates: start: 20130901, end: 20160726
  9. PLAQUENIL [Concomitant]
     Active Substance: HYDROXYCHLOROQUINE SULFATE
  10. LEVOTHYROXINE. [Concomitant]
     Active Substance: LEVOTHYROXINE
  11. MIRALAX [Concomitant]
     Active Substance: POLYETHYLENE GLYCOL 3350
  12. MAGNESIUM [Concomitant]
     Active Substance: MAGNESIUM
  13. VITAMIN D [Concomitant]
     Active Substance: CHOLECALCIFEROL
  14. PERCOCET [Concomitant]
     Active Substance: ACETAMINOPHEN\OXYCODONE HYDROCHLORIDE
  15. CELEXA [Concomitant]
     Active Substance: CITALOPRAM HYDROBROMIDE
  16. GABAPENTIN. [Concomitant]
     Active Substance: GABAPENTIN
  17. ONDANSETRON [Concomitant]
     Active Substance: ONDANSETRON
  18. PRILOSEC [Concomitant]
     Active Substance: OMEPRAZOLE MAGNESIUM
  19. PILOCARPINE. [Concomitant]
     Active Substance: PILOCARPINE
  20. MULTIVITAMIN [Concomitant]
     Active Substance: VITAMINS

REACTIONS (5)
  - Fall [None]
  - Lethargy [None]
  - Urinary retention [None]
  - Constipation [None]
  - Infrequent bowel movements [None]
